FAERS Safety Report 5465835-5 (Version None)
Quarter: 2007Q3

REPORT INFORMATION
  Report Type: 
  Country: None (occurrence: None)
  Receive Date: 20070919
  Receipt Date: 20070919
  Transmission Date: 20080115
  Serious: No
  Sender: FDA-Public Use
  Company Number: None

PATIENT

DRUGS (2)
  1. DOBUTAMINE HCL [Suspect]
     Dates: start: 20070606, end: 20070606
  2. DOBUTAMINE HCL [Suspect]

REACTIONS (1)
  - MEDICATION ERROR [None]
